FAERS Safety Report 5485296-X (Version None)
Quarter: 2007Q4

REPORT INFORMATION
  Report Type: 
  Country: None (occurrence: None)
  Receive Date: 20071010
  Receipt Date: 20071010
  Transmission Date: 20080405
  Serious: Yes (Death)
  Sender: FDA-Public Use
  Company Number: None

PATIENT
  Age: 75 Year
  Sex: Male
  Weight: 84 kg

DRUGS (2)
  1. ASPIRIN [Suspect]
     Indication: CORONARY ARTERY DISEASE
     Dosage: 81 MG DAILY PO
     Route: 048
  2. HEPARIN [Suspect]
     Indication: ATRIAL FIBRILLATION
     Dosage: 800 UNITS PER HOUR IV DRIP
     Route: 041
     Dates: start: 20071006, end: 20071007

REACTIONS (10)
  - COMA [None]
  - DYSPNOEA [None]
  - FALL [None]
  - HEAD INJURY [None]
  - HYPERTENSION [None]
  - INTRAVENTRICULAR HAEMORRHAGE [None]
  - RIB FRACTURE [None]
  - SUBDURAL HAEMORRHAGE [None]
  - SYNCOPE [None]
  - UNRESPONSIVE TO STIMULI [None]
